FAERS Safety Report 5770434-1 (Version None)
Quarter: 2008Q2

REPORT INFORMATION
  Report Type: 
  Country: None (occurrence: None)
  Receive Date: 20080613
  Receipt Date: 20080430
  Transmission Date: 20081010
  Serious: No
  Sender: FDA-Public Use
  Company Number: US-ABBOTT-08P-163-0449702-00

PATIENT
  Sex: Male
  Weight: 99.88 kg

DRUGS (3)
  1. HUMIRA [Suspect]
     Indication: PSORIASIS
     Route: 058
     Dates: start: 20080415
  2. HUMIRA [Suspect]
     Route: 058
  3. OINTMENT [Concomitant]
     Indication: PSORIASIS

REACTIONS (1)
  - INJECTION SITE PAIN [None]
